FAERS Safety Report 4372094-3 (Version None)
Quarter: 2004Q2

REPORT INFORMATION
  Report Type: 
  Country: None (occurrence: None)
  Receive Date: 20040603
  Receipt Date: 20040603
  Transmission Date: 20050107
  Serious: Yes (Life-Threatening)
  Sender: FDA-Public Use
  Company Number: None

PATIENT
  Age: 71 Year
  Sex: Female
  Weight: 94.2 kg

DRUGS (2)
  1. DIGOXIN [Suspect]
     Indication: ATRIAL FIBRILLATION
     Dosage: 0.125 MG/0.06 EVERY OTHE ORAL
     Route: 048
  2. POTASSIUM [Suspect]
     Indication: ELECTROLYTE SUBSTITUTION THERAPY
     Dosage: BID ORAL
     Route: 048

REACTIONS (9)
  - ATRIOVENTRICULAR BLOCK COMPLETE [None]
  - BLOOD CREATININE INCREASED [None]
  - CHEST DISCOMFORT [None]
  - CONTRAST MEDIA REACTION [None]
  - DYSPNOEA [None]
  - HYPERKALAEMIA [None]
  - PNEUMONIA [None]
  - RENAL DISORDER [None]
  - THERAPEUTIC AGENT TOXICITY [None]
